FAERS Safety Report 14123130 (Version 1)
Quarter: 2017Q4

REPORT INFORMATION
  Report Type: Spontaneous
  Country: US (occurrence: US)
  Receive Date: 20171024
  Receipt Date: 20171024
  Transmission Date: 20180321
  Serious: Yes (Other)
  Sender: FDA-Public Use
  Company Number: None

PATIENT
  Sex: Female

DRUGS (1)
  1. IMIPRAMINE [Suspect]
     Active Substance: IMIPRAMINE
     Indication: DEPRESSION
     Route: 048
     Dates: start: 20170905, end: 20171002

REACTIONS (4)
  - Product substitution issue [None]
  - Depression [None]
  - Condition aggravated [None]
  - Suicidal ideation [None]
